FAERS Safety Report 9833063 (Version 1)
Quarter: 2014Q1

REPORT INFORMATION
  Report Type: Spontaneous
  Country: GB (occurrence: GB)
  Receive Date: 20140121
  Receipt Date: 20140121
  Transmission Date: 20141002
  Serious: Yes (Other)
  Sender: FDA-Public Use
  Company Number: GB-PFIZER INC-2014015362

PATIENT
  Age: 53 Year
  Sex: Female
  Weight: 65 kg

DRUGS (3)
  1. DOXYCYCLINE MONOHYDRATE [Suspect]
     Indication: MALARIA PROPHYLAXIS
     Dosage: UNK
     Dates: start: 20140108
  2. CONJUGATED ESTROGENS [Concomitant]
     Dosage: UNK
     Dates: start: 20131014, end: 20131111
  3. CONJUGATED ESTROGENS [Concomitant]
     Dates: start: 20140108

REACTIONS (2)
  - Hyperaesthesia [Recovered/Resolved]
  - Depression [Recovered/Resolved]
